FAERS Safety Report 17134871 (Version 1)
Quarter: 2019Q4

REPORT INFORMATION
  Report Type: Spontaneous
  Country: DE (occurrence: DE)
  Receive Date: 20191210
  Receipt Date: 20191210
  Transmission Date: 20200122
  Serious: Yes (Death, Other)
  Sender: FDA-Public Use
  Company Number: NVSC2019DE061862

PATIENT
  Sex: Male

DRUGS (4)
  1. PEMETREXED DISODIUM [Suspect]
     Active Substance: PEMETREXED DISODIUM
     Indication: LUNG NEOPLASM MALIGNANT
     Dosage: 500 MG/M2, UNKNOWN (4TH LINE, 500 MILLIGRAM/SQ. METER, IN TOTAL 5 CYCLES)
     Route: 065
     Dates: start: 201809, end: 201812
  2. NINTEDANIB [Suspect]
     Active Substance: NINTEDANIB
     Indication: LUNG NEOPLASM MALIGNANT
     Dosage: 400 MG, QD (3RD LINE, 200 MILLIGRAM, 1-0-1 (BID), IN TOTAL 1 CYCLE)
     Route: 065
     Dates: start: 201804, end: 201805
  3. DOCETAXEL. [Suspect]
     Active Substance: DOCETAXEL
     Indication: PRODUCT USED FOR UNKNOWN INDICATION
     Dosage: 75 MG/M2, UNKNOWN (3RD LINE, 75 MILLIGRAM/SQ. METER D1 QW3, IN TOTAL 1 CYCLE)
     Route: 065
     Dates: start: 201804, end: 201805
  4. PEMBROLIZUMAB. [Suspect]
     Active Substance: PEMBROLIZUMAB
     Indication: LUNG NEOPLASM MALIGNANT
     Dosage: 2 MG/KG, UNKNOWN (2ND LINE, 2MG/KG BODY WEIGHT, CYCLICAL, TOTAL 17 CYCLES)
     Route: 065
     Dates: start: 201704, end: 201804

REACTIONS (5)
  - Malignant neoplasm progression [Fatal]
  - Malignant neoplasm progression [Fatal]
  - Malignant neoplasm progression [Fatal]
  - Gastrointestinal disorder [Fatal]
  - Adverse drug reaction [Fatal]

NARRATIVE: CASE EVENT DATE: 2018
